FAERS Safety Report 10398615 (Version 1)
Quarter: 2014Q1

REPORT INFORMATION
  Report Type: Spontaneous
  Country: US (occurrence: None)
  Receive Date: 20130815
  Receipt Date: 20130815
  Transmission Date: 20141002
  Serious: Yes (Hospitalization)
  Sender: FDA-Public Use
  Company Number: ADR-2012-01223

PATIENT
  Age: 68 Year
  Sex: Male

DRUGS (1)
  1. BACLOFEN INTRATHECAL (BACLOFEN INJECTION) [Suspect]
     Dosage: 50 MCG/DAY

REACTIONS (5)
  - Cerebrovascular accident [None]
  - Visual impairment [None]
  - Pain [None]
  - Hemiparesis [None]
  - Speech disorder [None]
